FAERS Safety Report 10162551 (Version 3)
Quarter: 2014Q4

REPORT INFORMATION
  Report Type: Report from Study
  Country: GB (occurrence: GB)
  Receive Date: 20140509
  Receipt Date: 20141010
  Transmission Date: 20150528
  Serious: Yes (Other)
  Sender: FDA-Public Use
  Company Number: GB-US-EMD SERONO, INC.-7289459

PATIENT
  Age: 46 Year
  Sex: Female

DRUGS (2)
  1. REBIF [Suspect]
     Active Substance: INTERFERON BETA-1A
     Indication: RELAPSING-REMITTING MULTIPLE SCLEROSIS
     Route: 058
     Dates: start: 20060509, end: 201402
  2. REBIF [Suspect]
     Active Substance: INTERFERON BETA-1A
     Dates: start: 201404

REACTIONS (4)
  - Rectal haemorrhage [Recovering/Resolving]
  - Irritable bowel syndrome [Unknown]
  - Urinary tract infection [Recovered/Resolved]
  - Injection site infection [Recovered/Resolved]

NARRATIVE: CASE EVENT DATE: 20130901
